FAERS Safety Report 5242285-8 (Version None)
Quarter: 2007Q1

REPORT INFORMATION
  Report Type: 
  Country: None (occurrence: None)
  Receive Date: 20070216
  Receipt Date: 20070216
  Transmission Date: 20070707
  Serious: Yes (Hospitalization)
  Sender: FDA-Public Use
  Company Number: None

PATIENT
  Age: 31 Year
  Sex: Male
  Weight: 126 kg

DRUGS (1)
  1. INNOHEP [Suspect]
     Indication: THROMBOSIS PROPHYLAXIS
     Dosage: 4500 IU SC QD
     Route: 058
     Dates: start: 20051006, end: 20051011

REACTIONS (11)
  - BRAIN OEDEMA [None]
  - COGNITIVE DISORDER [None]
  - CONVULSION [None]
  - HEADACHE [None]
  - IIIRD NERVE PARALYSIS [None]
  - IVTH NERVE PARALYSIS [None]
  - MENTAL STATUS CHANGES [None]
  - PAIN [None]
  - RASH PAPULAR [None]
  - URINARY TRACT INFECTION [None]
  - VITH NERVE DISORDER [None]
